FAERS Safety Report 26040890 (Version 3)
Quarter: 2025Q4

REPORT INFORMATION
  Report Type: Spontaneous
  Country: US (occurrence: US)
  Receive Date: 20251113
  Receipt Date: 20251218
  Transmission Date: 20260117
  Serious: No
  Sender: PFIZER
  Company Number: US-PFIZER INC-202500218914

PATIENT
  Age: 13 Year
  Sex: Female

DRUGS (4)
  1. GENOTROPIN [Suspect]
     Active Substance: SOMATROPIN
     Indication: Turner^s syndrome
     Dosage: EVERY DAY TOOK 1.1 DOSE UNITS UNKNOWN BY INJECTION
     Dates: start: 2023
  2. GENOTROPIN [Suspect]
     Active Substance: SOMATROPIN
     Dosage: UPPED DOSE
     Dates: start: 20251027
  3. ESTRADIOL [Concomitant]
     Active Substance: ESTRADIOL
     Dosage: PATCH. DOSE UNKNOWN. TAKES TWICE A WEEK
     Dates: start: 2023
  4. ESTRADIOL [Concomitant]
     Active Substance: ESTRADIOL
     Dosage: SWITCHED TO STRONGER DOSE

REACTIONS (1)
  - Device defective [Unknown]
